FAERS Safety Report 4350247-8 (Version None)
Quarter: 2004Q2

REPORT INFORMATION
  Report Type: 
  Country: None (occurrence: None)
  Receive Date: 20040427
  Receipt Date: 20030307
  Transmission Date: 20050107
  Serious: No
  Sender: FDA-Public Use
  Company Number: 000476

PATIENT
  Age: 73 Year
  Sex: Male
  Weight: 57.6 kg

DRUGS (5)
  1. ZEVALIN [Suspect]
     Indication: NON-HODGKIN'S LYMPHOMA
     Dosage: 425 MG, SINGLE, RITUXAN DOSE 1, INTRAVENOUS; 5 MCI, SINGLE, IN-[111] ZEVALIN, INTRAVENOUS
     Route: 042
     Dates: start: 20021216, end: 20021216
  2. ZEVALIN [Suspect]
     Indication: NON-HODGKIN'S LYMPHOMA
     Dosage: 425 MG, SINGLE, RITUXAN DOSE 1, INTRAVENOUS; 5 MCI, SINGLE, IN-[111] ZEVALIN, INTRAVENOUS
     Route: 042
     Dates: start: 20021216, end: 20021216
  3. ZEVALIN [Suspect]
     Dosage: 425 MG, SINGLE, RITUXAN DOSE 2, INTRAVENOUS; 25 MCI, SINGLE, Y-[90] ZEVALIN, INTRAVENOUS
     Route: 042
     Dates: start: 20021221, end: 20021221
  4. ZEVALIN [Suspect]
     Dosage: 425 MG, SINGLE, RITUXAN DOSE 2, INTRAVENOUS; 25 MCI, SINGLE, Y-[90] ZEVALIN, INTRAVENOUS
     Route: 042
     Dates: start: 20021221, end: 20021221
  5. PREDNISONE [Concomitant]

REACTIONS (6)
  - ABDOMINAL PAIN [None]
  - ANOREXIA [None]
  - ASCITES [None]
  - CHEST PAIN [None]
  - DISEASE PROGRESSION [None]
  - WEIGHT DECREASED [None]
